FAERS Safety Report 16039361 (Version 1)
Quarter: 2019Q2

REPORT INFORMATION
  Report Type: Spontaneous
  Country: US (occurrence: US)
  Receive Date: 20190305
  Receipt Date: 20190305
  Transmission Date: 20190711
  Serious: Yes (Disabling)
  Sender: FDA-Public Use
  Company Number: None

PATIENT
  Age: 8 Year
  Sex: Female
  Weight: 24.3 kg

DRUGS (4)
  1. MULTIVITAMINS [Concomitant]
     Active Substance: VITAMINS
  2. VYVANSE [Suspect]
     Active Substance: LISDEXAMFETAMINE DIMESYLATE
     Indication: ATTENTION DEFICIT/HYPERACTIVITY DISORDER
     Dosage: ?          QUANTITY:1 CAPSULE(S);?
     Route: 048
  3. FLUOXETINE [Suspect]
     Active Substance: FLUOXETINE HYDROCHLORIDE
  4. TYLENOL [Concomitant]
     Active Substance: ACETAMINOPHEN

REACTIONS (12)
  - Abdominal pain upper [None]
  - Weight decreased [None]
  - Decreased appetite [None]
  - Serotonin syndrome [None]
  - Psychomotor hyperactivity [None]
  - Rebound effect [None]
  - Headache [None]
  - Self esteem decreased [None]
  - Aggression [None]
  - Mood swings [None]
  - Palpitations [None]
  - Depression [None]

NARRATIVE: CASE EVENT DATE: 20190204
